FAERS Safety Report 20697656 (Version 2)
Quarter: 2022Q2

REPORT INFORMATION
  Report Type: Spontaneous
  Country: MX (occurrence: MX)
  Receive Date: 20220411
  Receipt Date: 20220518
  Transmission Date: 20220720
  Serious: Yes (Death)
  Sender: FDA-Public Use
  Company Number: MX-LUNDBECK-DKLU3046763

PATIENT
  Age: 36 Year
  Sex: Male
  Weight: 95 kg

DRUGS (6)
  1. CLOBAZAM [Suspect]
     Active Substance: CLOBAZAM
     Indication: Seizure
     Route: 048
     Dates: start: 2002, end: 20220331
  2. CARBAMAZEPINE [Suspect]
     Active Substance: CARBAMAZEPINE
     Indication: Seizure
     Route: 048
     Dates: start: 2002, end: 20220331
  3. CARBAMAZEPINE [Suspect]
     Active Substance: CARBAMAZEPINE
     Route: 048
     Dates: start: 2002, end: 20220331
  4. CARBAMAZEPINE [Suspect]
     Active Substance: CARBAMAZEPINE
     Route: 048
     Dates: start: 2002, end: 20220331
  5. RISPERIDONE [Suspect]
     Active Substance: RISPERIDONE
     Indication: Seizure
     Route: 048
     Dates: end: 20220331
  6. RIVOTRIL [Concomitant]
     Active Substance: CLONAZEPAM
     Indication: Seizure
     Route: 048
     Dates: end: 20220331

REACTIONS (8)
  - Respiratory arrest [Fatal]
  - Infection [Fatal]
  - Urinary tract infection [Fatal]
  - Pharyngitis [Fatal]
  - Body temperature increased [Fatal]
  - Eating disorder [Fatal]
  - Terminal state [Fatal]
  - Off label use [Unknown]

NARRATIVE: CASE EVENT DATE: 20220324
